FAERS Safety Report 4392584-7 (Version None)
Quarter: 2004Q3

REPORT INFORMATION
  Report Type: 
  Country: None (occurrence: None)
  Receive Date: 20040701
  Receipt Date: 20040616
  Transmission Date: 20050211
  Serious: Yes (Hospitalization)
  Sender: FDA-Public Use
  Company Number: 2004-FF-00292FF

PATIENT
  Age: 30 Month
  Sex: Female

DRUGS (4)
  1. VIRAMUNE [Suspect]
     Indication: HIV INFECTION
     Dosage: IU
     Route: 015
  2. VIRACEPT [Concomitant]
  3. ZIAGEN [Concomitant]
  4. ZIDOVUDINE [Concomitant]

REACTIONS (5)
  - ADENOMA BENIGN [None]
  - ANAEMIA [None]
  - DRUG EXPOSURE DURING PREGNANCY [None]
  - EPENDYMOMA [None]
  - NEUTROPENIA [None]
